FAERS Safety Report 5993346-7 (Version None)
Quarter: 2008Q4

REPORT INFORMATION
  Report Type: 
  Country: None (occurrence: None)
  Receive Date: 20081210
  Receipt Date: 20081210
  Transmission Date: 20090506
  Serious: Yes (Other)
  Sender: FDA-Public Use
  Company Number: None

PATIENT
  Sex: Male
  Weight: 20.8655 kg

DRUGS (2)
  1. SINGULAIR [Suspect]
     Indication: ASTHMA
     Dates: start: 20070501, end: 20080520
  2. SINGULAIR [Suspect]
     Indication: ASTHMA
     Dates: start: 20030301, end: 20070501

REACTIONS (7)
  - ATTENTION DEFICIT/HYPERACTIVITY DISORDER [None]
  - AUTISM SPECTRUM DISORDER [None]
  - COMMUNICATION DISORDER [None]
  - CRYING [None]
  - MOOD SWINGS [None]
  - SCREAMING [None]
  - SPEECH DISORDER DEVELOPMENTAL [None]
